FAERS Safety Report 5649645-1 (Version None)
Quarter: 2008Q1

REPORT INFORMATION
  Report Type: 
  Country: None (occurrence: None)
  Receive Date: 20080304
  Receipt Date: 20080221
  Transmission Date: 20080703
  Serious: Yes (Hospitalization, Disabling, Other)
  Sender: FDA-Public Use
  Company Number: EG-PFIZER INC-2008012895

PATIENT
  Age: 27 Year
  Sex: Female

DRUGS (4)
  1. SUTENT [Suspect]
     Indication: RENAL CELL CARCINOMA
     Route: 048
     Dates: start: 20071001, end: 20071225
  2. AMARYL [Concomitant]
     Indication: DIABETES MELLITUS
     Route: 048
  3. GASEC [Concomitant]
     Route: 048
     Dates: start: 20071001, end: 20071225
  4. SUSTAGEN [Concomitant]
     Route: 048
     Dates: start: 20071001, end: 20071225

REACTIONS (9)
  - COLLAPSE OF LUNG [None]
  - DIABETES MELLITUS INADEQUATE CONTROL [None]
  - GAIT DISTURBANCE [None]
  - METASTASES TO LIVER [None]
  - NEUROPATHY PERIPHERAL [None]
  - OEDEMA PERIPHERAL [None]
  - PERONEAL NERVE PALSY [None]
  - PLEURAL EFFUSION [None]
  - THROMBOSIS [None]
